FAERS Safety Report 6761888-2 (Version None)
Quarter: 2010Q2

REPORT INFORMATION
  Report Type: 
  Country: None (occurrence: None)
  Receive Date: 20100609
  Receipt Date: 20100609
  Transmission Date: 20101027
  Serious: Yes (Hospitalization)
  Sender: FDA-Public Use
  Company Number: None

PATIENT
  Age: 12 Month
  Sex: Female
  Weight: 11.3399 kg

DRUGS (2)
  1. CONCENTRATED TYLENOL INFANT DROPS [Suspect]
     Indication: TEETHING
     Dates: start: 20091023, end: 20091027
  2. CONCENTRATED MOTRIN INFANTS DROPS [Suspect]

REACTIONS (3)
  - CONVULSION [None]
  - INFLUENZA [None]
  - VOMITING [None]
